FAERS Safety Report 9203458 (Version 1)
Quarter: 2013Q1

REPORT INFORMATION
  Report Type: Spontaneous
  Country: RO (occurrence: None)
  Receive Date: 20130328
  Receipt Date: 20130328
  Transmission Date: 20140127
  Serious: Yes (Other)
  Sender: FDA-Public Use
  Company Number: AUR-APL-2013-02542

PATIENT
  Sex: Male
  Weight: 2.5 kg

DRUGS (6)
  1. AMLODIPINE (AMLODIPINE) [Suspect]
     Indication: BLOOD PRESSURE INCREASED
     Route: 064
  2. ALPHA-METHYLDOPA [Suspect]
     Indication: BLOOD PRESSURE INCREASED
  3. ENOXAPARIN [Suspect]
     Indication: PRODUCT USED FOR UNKNOWN INDICATION
     Route: 064
  4. FOLIC ACID (FOLIC ACID) [Concomitant]
  5. VITAMIN B 6 (PYRIDOXINE HYDROCHLORIDE) [Concomitant]
  6. VITAMIN B12 (CYANOCOBALAMIN) [Concomitant]

REACTIONS (3)
  - Maternal drugs affecting foetus [None]
  - Foetal growth restriction [None]
  - Caesarean section [None]
